FAERS Safety Report 7310320-9 (Version None)
Quarter: 2011Q1

REPORT INFORMATION
  Report Type: 
  Country: None (occurrence: None)
  Receive Date: 20110224
  Receipt Date: 20100624
  Transmission Date: 20110831
  Serious: No
  Sender: FDA-Public Use
  Company Number: US-TYCO HEALTHCARE/MALLINCKRODT-T201001526

PATIENT
  Age: 66 Year
  Sex: Female

DRUGS (2)
  1. TECHNESCAN [Suspect]
     Indication: BONE SCAN
     Dosage: UNK
     Dates: start: 20100618, end: 20100618
  2. TECHNETIUM TC-99M [Concomitant]
     Dosage: UNK
     Dates: start: 20100618, end: 20100618

REACTIONS (1)
  - DRUG INEFFECTIVE [None]
